FAERS Safety Report 5710634-X (Version None)
Quarter: 2008Q2

REPORT INFORMATION
  Report Type: 
  Country: None (occurrence: None)
  Receive Date: 20080415
  Receipt Date: 20080409
  Transmission Date: 20081010
  Serious: Yes (Hospitalization)
  Sender: FDA-Public Use
  Company Number: E2020-02408-SPO-JP

PATIENT
  Age: 77 Year
  Sex: Female

DRUGS (9)
  1. ARICEPT [Suspect]
     Indication: DEMENTIA ALZHEIMER'S TYPE
     Dosage: 3 MG, 1IN 1 D, ORAL; 5 MG, 1 IN 1 D, ORAL
     Route: 048
     Dates: start: 20060511, end: 20060501
  2. ARICEPT [Suspect]
     Indication: MEMORY IMPAIRMENT
     Dosage: 3 MG, 1IN 1 D, ORAL; 5 MG, 1 IN 1 D, ORAL
     Route: 048
     Dates: start: 20060511, end: 20060501
  3. ARICEPT [Suspect]
     Indication: DEMENTIA ALZHEIMER'S TYPE
     Dosage: 3 MG, 1IN 1 D, ORAL; 5 MG, 1 IN 1 D, ORAL
     Route: 048
     Dates: start: 20060501, end: 20080218
  4. ARICEPT [Suspect]
     Indication: MEMORY IMPAIRMENT
     Dosage: 3 MG, 1IN 1 D, ORAL; 5 MG, 1 IN 1 D, ORAL
     Route: 048
     Dates: start: 20060501, end: 20080218
  5. FLUZISAL (TIAPRIDE HYDROCHLORIDE) [Suspect]
     Indication: AGGRESSION
     Dosage: 75 MG, 3 IN 1 D
     Dates: start: 20080115, end: 20080218
  6. FLUZISAL (TIAPRIDE HYDROCHLORIDE) [Suspect]
     Indication: INSOMNIA
     Dosage: 75 MG, 3 IN 1 D
     Dates: start: 20080115, end: 20080218
  7. FLUZISAL (TIAPRIDE HYDROCHLORIDE) [Suspect]
     Indication: RESTLESSNESS
     Dosage: 75 MG, 3 IN 1 D
     Dates: start: 20080115, end: 20080218
  8. NORVASC [Concomitant]
  9. DIOVAN [Concomitant]

REACTIONS (5)
  - AGGRESSION [None]
  - ALTERED STATE OF CONSCIOUSNESS [None]
  - BRADYCARDIA [None]
  - INSOMNIA [None]
  - RESTLESSNESS [None]
